FAERS Safety Report 23379135 (Version 1)
Quarter: 2024Q1

REPORT INFORMATION
  Report Type: Spontaneous
  Country: US (occurrence: None)
  Receive Date: 20240108
  Receipt Date: 20240108
  Transmission Date: 20240409
  Serious: No
  Sender: FDA-Public Use
  Company Number: None

PATIENT
  Age: 65 Year
  Sex: Female
  Weight: 52.16 kg

DRUGS (1)
  1. ENBREL [Suspect]
     Active Substance: ETANERCEPT
     Indication: Psoriasis
     Dosage: FREQUENCY : TWICE A WEEK;?OTHER ROUTE : SC 72 - 96 HRS FOR 3 MONTHS AS DIRECTED;?
     Route: 050
     Dates: start: 202310

REACTIONS (2)
  - Influenza [None]
  - Therapy interrupted [None]
